FAERS Safety Report 6530245-6 (Version None)
Quarter: 2010Q1

REPORT INFORMATION
  Report Type: 
  Country: None (occurrence: None)
  Receive Date: 20100107
  Receipt Date: 20091230
  Transmission Date: 20100710
  Serious: Yes (Other)
  Sender: FDA-Public Use
  Company Number: US-GENENTECH-296535

PATIENT
  Age: 63 Year
  Sex: Male

DRUGS (1)
  1. RITUXAN [Suspect]
     Indication: NON-HODGKIN'S LYMPHOMA

REACTIONS (7)
  - BRADYPHRENIA [None]
  - DYSPNOEA [None]
  - FATIGUE [None]
  - GALLBLADDER DISORDER [None]
  - MEMORY IMPAIRMENT [None]
  - MOVEMENT DISORDER [None]
  - PAIN [None]
